FAERS Safety Report 18351724 (Version 2)
Quarter: 2020Q4

REPORT INFORMATION
  Report Type: Spontaneous
  Country: US (occurrence: US)
  Receive Date: 20201006
  Receipt Date: 20201021
  Transmission Date: 20210114
  Serious: Yes (Death, Hospitalization)
  Sender: FDA-Public Use
  Company Number: US-TEVA-2020-US-1835148

PATIENT
  Age: 67 Year
  Sex: Male

DRUGS (4)
  1. CLONAZEPAM. [Concomitant]
     Active Substance: CLONAZEPAM
     Indication: PRODUCT USED FOR UNKNOWN INDICATION
     Route: 065
  2. ATORVASTATIN [Concomitant]
     Active Substance: ATORVASTATIN
     Indication: PRODUCT USED FOR UNKNOWN INDICATION
     Route: 065
  3. CLOPIDOGREL [Concomitant]
     Active Substance: CLOPIDOGREL BISULFATE
     Indication: PRODUCT USED FOR UNKNOWN INDICATION
     Route: 065
  4. RANOLAZINE. [Suspect]
     Active Substance: RANOLAZINE
     Indication: SUICIDE ATTEMPT
     Dosage: HE HAD INGESTED APPROXIMATELY 30G OF EXTENDED-RELEASE RANOLAZINE SEVERAL HOURS PRIOR IN A SUICIDE...
     Route: 048

REACTIONS (9)
  - Intentional overdose [Fatal]
  - Confusional state [Not Recovered/Not Resolved]
  - Atrioventricular block first degree [Fatal]
  - Ventricular tachycardia [Fatal]
  - Pulseless electrical activity [Fatal]
  - Vomiting [Not Recovered/Not Resolved]
  - Mental status changes [Not Recovered/Not Resolved]
  - Seizure [Recovered/Resolved]
  - Cardiac arrest [Fatal]
